FAERS Safety Report 7573469-1 (Version None)
Quarter: 2011Q2

REPORT INFORMATION
  Report Type: 
  Country: None (occurrence: None)
  Receive Date: 20110627
  Receipt Date: 20110623
  Transmission Date: 20111010
  Serious: Yes (Hospitalization)
  Sender: FDA-Public Use
  Company Number: US-GILEAD-2011-0041099

PATIENT
  Age: 70 Year
  Sex: Male

DRUGS (3)
  1. RANEXA [Suspect]
     Indication: ANGINA PECTORIS
     Route: 048
  2. RANEXA [Suspect]
     Route: 048
  3. CRESTOR [Concomitant]

REACTIONS (1)
  - RHABDOMYOLYSIS [None]
